FAERS Safety Report 24664266 (Version 1)
Quarter: 2024Q4

REPORT INFORMATION
  Report Type: Spontaneous
  Country: IE (occurrence: IE)
  Receive Date: 20241126
  Receipt Date: 20241126
  Transmission Date: 20250114
  Serious: Yes (Hospitalization, Other)
  Sender: MYLAN
  Company Number: IE-MYLANLABS-2024M1104381

PATIENT
  Sex: Female

DRUGS (2)
  1. CLOZARIL [Suspect]
     Active Substance: CLOZAPINE
     Indication: Schizophrenia
     Dosage: 50 MILLIGRAM, (2 X50 MG)
     Route: 048
     Dates: start: 20211103
  2. CLOZARIL [Suspect]
     Active Substance: CLOZAPINE
     Dosage: 25 MILLIGRAM, (2 X 25 MG)
     Route: 048

REACTIONS (2)
  - Head discomfort [Unknown]
  - Electrocardiogram QT prolonged [Not Recovered/Not Resolved]
